FAERS Safety Report 22244811 (Version 1)
Quarter: 2023Q2

REPORT INFORMATION
  Report Type: Spontaneous
  Country: KR (occurrence: KR)
  Receive Date: 20230424
  Receipt Date: 20230424
  Transmission Date: 20230721
  Serious: Yes (Other)
  Sender: FDA-Public Use
  Company Number: KR-FreseniusKabi-FK202305108

PATIENT
  Age: 18 Year
  Sex: Female

DRUGS (4)
  1. REMIFENTANIL [Suspect]
     Active Substance: REMIFENTANIL
     Indication: Anaesthesia
     Dosage: 2 NG/ML
  2. ROCURONIUM BROMIDE [Concomitant]
     Active Substance: ROCURONIUM BROMIDE
     Indication: Anaesthesia
     Dosage: 0 POINT 6 MG/KG
  3. DESFLURANE [Concomitant]
     Active Substance: DESFLURANE
     Indication: Anaesthesia
     Dosage: VENTILATING WITH 5 PERCENT 6 VOL  PERCENT OF DESFLURANE.
  4. PROPOFOL [Concomitant]
     Active Substance: PROPOFOL
     Indication: Anaesthesia
     Dosage: 2 MG/KG

REACTIONS (1)
  - Ventricular extrasystoles [Recovered/Resolved]
